FAERS Safety Report 4721514-0 (Version None)
Quarter: 2005Q3

REPORT INFORMATION
  Report Type: 
  Country: None (occurrence: None)
  Receive Date: 20050721
  Receipt Date: 20041028
  Transmission Date: 20060218
  Serious: No
  Sender: FDA-Public Use
  Company Number: US-BRISTOL-MYERS SQUIBB COMPANY-12749792

PATIENT
  Age: 49 Year
  Sex: Male

DRUGS (5)
  1. COUMADIN [Suspect]
     Indication: THROMBOSIS
  2. LOVENOX [Suspect]
     Indication: THROMBOSIS
     Dates: start: 20041009
  3. OXYCONTIN [Concomitant]
     Indication: PAIN
  4. PROZAC [Concomitant]
     Dosage: TAKEN FOR A FEW YEARS
  5. DILAUDID [Concomitant]

REACTIONS (2)
  - NIGHT SWEATS [None]
  - NO THERAPEUTIC RESPONSE [None]
